FAERS Safety Report 8315982 (Version 3)
Quarter: 2021Q1

REPORT INFORMATION
  Report Type: Report from Study
  Country: None (occurrence: CA)
  Receive Date: 20111229
  Receipt Date: 20210115
  Transmission Date: 20210420
  Serious: Yes (Hospitalization, Other)
  Sender: FDA-Public Use
  Company Number: CA-SHIRE-ALL1-2011-05070

PATIENT

DRUGS (27)
  1. IDURSULFASE [Suspect]
     Active Substance: IDURSULFASE
     Dosage: 14.3 MILLIGRAM, 1X/WEEK
     Route: 041
  2. IDURSULFASE [Suspect]
     Active Substance: IDURSULFASE
     Dosage: 0.5 MILLIGRAM/KILOGRAM, 1X/WEEK
     Route: 041
     Dates: start: 20090914
  3. CHOLECALCIFEROL [Concomitant]
     Active Substance: CHOLECALCIFEROL
     Indication: VITAMIN SUPPLEMENTATION
     Dosage: 400 MG, 1X/DAY:QD
     Route: 051
  4. OTHER THERAPEUTIC PRODUCTS [Concomitant]
     Active Substance: UNSPECIFIED INGREDIENT
     Indication: GASTROINTESTINAL DISORDER
     Dosage: 20 MG, 3X/DAY:TID
     Route: 051
  5. IDURSULFASE [Suspect]
     Active Substance: IDURSULFASE
     Dosage: 12 MILLIGRAM, 1X/WEEK
     Route: 041
     Dates: start: 20080813
  6. PARACETAMOL [Concomitant]
     Active Substance: ACETAMINOPHEN
     Indication: PREMEDICATION
     Dosage: 350 MG, AS REQ^D
     Route: 048
     Dates: start: 20080822
  7. METHYLPREDNISOLONE. [Concomitant]
     Active Substance: METHYLPREDNISOLONE
     Dosage: 30 MG, AS REQ^D
     Route: 041
     Dates: start: 20081008, end: 20081126
  8. BUDESONIDE. [Concomitant]
     Active Substance: BUDESONIDE
     Indication: RESPIRATORY DISORDER
     Dosage: 1.0 MG, 2X/DAY:BID
     Route: 055
     Dates: start: 2008
  9. FLUTICASONE. [Concomitant]
     Active Substance: FLUTICASONE
     Indication: RESPIRATORY DISORDER
     Dosage: 50 ?G, 2X/DAY:BID
     Route: 055
     Dates: start: 2007
  10. PARACETAMOL [Concomitant]
     Active Substance: ACETAMINOPHEN
     Dosage: 450 MG, AS REQ^D
     Route: 048
     Dates: start: 20080813, end: 20080911
  11. MELATONIN [Concomitant]
     Active Substance: MELATONIN
     Dosage: 6 MG, 1X/DAY:QD
     Route: 051
  12. GABAPENTIN. [Concomitant]
     Active Substance: GABAPENTIN
     Indication: PAIN
     Dosage: 300 MG, 1X/DAY:QD
     Route: 051
  13. LACTULOSE. [Concomitant]
     Active Substance: LACTULOSE
     Indication: SUPPLEMENTATION THERAPY
     Dosage: 10 ML, 2X/DAY:BID
     Route: 051
  14. IDURSULFASE [Suspect]
     Active Substance: IDURSULFASE
     Dosage: 0.5 MILLIGRAM/KILOGRAM, 1X/WEEK
     Route: 041
     Dates: start: 20080813, end: 20090909
  15. SALBUTAMOL [Concomitant]
     Active Substance: ALBUTEROL
     Indication: PREMEDICATION
     Dosage: 0.9 ML, AS REQ^D
     Route: 055
     Dates: start: 20080813
  16. SALBUTAMOL [Concomitant]
     Active Substance: ALBUTEROL
     Dosage: 1 PUFF, AS REQ^D
     Route: 055
     Dates: start: 2005
  17. MELATONIN [Concomitant]
     Active Substance: MELATONIN
     Indication: SLEEP DISORDER
     Dosage: 2.0 MG, 1X/DAY:QD
     Route: 048
     Dates: start: 200803
  18. FLUTICASONE. [Concomitant]
     Active Substance: FLUTICASONE
     Dosage: 125 ?G, 2X/DAY:BID
     Route: 055
     Dates: start: 2005, end: 2007
  19. METHYLPREDNISOLONE. [Concomitant]
     Active Substance: METHYLPREDNISOLONE
     Indication: PREMEDICATION
     Dosage: 40 MG, AS REQ^D
     Route: 042
     Dates: start: 20081126
  20. DIPHENHYDRAMINE. [Concomitant]
     Active Substance: DIPHENHYDRAMINE
     Indication: PREMEDICATION
     Dosage: 37.5 MG, AS REQ^D
     Route: 065
     Dates: start: 20081001
  21. CARBAMAZEPINE. [Concomitant]
     Active Substance: CARBAMAZEPINE
     Indication: NERVOUS SYSTEM DISORDER
     Dosage: 140 MG , 2X/DAY:BID
     Route: 048
     Dates: start: 20070514
  22. OTHER THERAPEUTIC PRODUCTS [Concomitant]
     Active Substance: UNSPECIFIED INGREDIENT
     Indication: PREMEDICATION
     Dosage: 5 ML, UNKNOWN
     Route: 055
  23. IDURSULFASE [Suspect]
     Active Substance: IDURSULFASE
     Indication: MUCOPOLYSACCHARIDOSIS II
     Dosage: 18 MILLIGRAM, 1X/WEEK (3 9.0 VIALS)
     Route: 041
  24. IDURSULFASE [Suspect]
     Active Substance: IDURSULFASE
     Dosage: 0.5 MILLIGRAM/KILOGRAM, 1/WEEK
     Route: 042
     Dates: start: 20100726
  25. ATROVENT [Concomitant]
     Active Substance: IPRATROPIUM BROMIDE
     Indication: NASAL CONGESTION
     Dosage: 0.03 DF, OTHER (2?3 TIMES DAILY)
     Route: 045
     Dates: start: 20110611
  26. RANITIDINE. [Concomitant]
     Active Substance: RANITIDINE
     Indication: GASTROINTESTINAL DISORDER
     Dosage: 30 MG, 1X/DAY:QD
     Route: 048
     Dates: start: 2006
  27. CLONAZEPAM. [Concomitant]
     Active Substance: CLONAZEPAM
     Indication: SLEEP DISORDER
     Dosage: 0.2 MG, 1X/DAY:QD
     Route: 051

REACTIONS (4)
  - Insomnia [Unknown]
  - Behaviour disorder [Unknown]
  - Restlessness [Recovered/Resolved]
  - Agitation [Recovered/Resolved]

NARRATIVE: CASE EVENT DATE: 20100908
